FAERS Safety Report 10355027 (Version 2)
Quarter: 2014Q3

REPORT INFORMATION
  Report Type: Spontaneous
  Country: CH (occurrence: CH)
  Receive Date: 20140731
  Receipt Date: 20140918
  Transmission Date: 20150326
  Serious: Yes (Hospitalization, Other)
  Sender: FDA-Public Use
  Company Number: CH-ABBVIE-14K-151-1265519-00

PATIENT
  Age: 52 Year
  Sex: Male
  Weight: 85 kg

DRUGS (34)
  1. PREZISTA [Suspect]
     Active Substance: DARUNAVIR ETHANOLATE
     Indication: HIV INFECTION
     Route: 048
  2. CREON [Concomitant]
     Active Substance: PANCRELIPASE AMYLASE\PANCRELIPASE LIPASE\PANCRELIPASE PROTEASE
     Indication: PRODUCT USED FOR UNKNOWN INDICATION
     Dosage: LONG TERM
     Route: 048
  3. NORVIR [Suspect]
     Active Substance: RITONAVIR
     Indication: HIV INFECTION
     Dosage: LONG TERM
     Route: 048
  4. BELOC [Suspect]
     Active Substance: METOPROLOL TARTRATE
     Indication: PRODUCT USED FOR UNKNOWN INDICATION
     Route: 048
  5. CYCLOPHOSPHAMIDE. [Suspect]
     Active Substance: CYCLOPHOSPHAMIDE
     Dosage: 1 CYCLE EVERY 3 WEEKS, 1ST CYCLE
     Route: 041
     Dates: start: 20140324, end: 201404
  6. VALTREX [Suspect]
     Active Substance: VALACYCLOVIR HYDROCHLORIDE
     Indication: HIV INFECTION
     Route: 048
  7. ZYLORIC [Suspect]
     Active Substance: ALLOPURINOL
     Indication: PRODUCT USED FOR UNKNOWN INDICATION
     Route: 048
     Dates: end: 20140514
  8. PREDNISONE. [Concomitant]
     Active Substance: PREDNISONE
     Indication: LYMPHOMA AIDS RELATED
     Route: 041
     Dates: start: 20140415, end: 20140419
  9. LANTUS [Concomitant]
     Active Substance: INSULIN GLARGINE
     Indication: INSULIN-REQUIRING TYPE 2 DIABETES MELLITUS
     Route: 058
  10. SPIRIVA [Concomitant]
     Active Substance: TIOTROPIUM BROMIDE MONOHYDRATE
     Indication: PRODUCT USED FOR UNKNOWN INDICATION
     Dosage: LONG TERM
     Route: 055
  11. QUANTALAN [Concomitant]
     Active Substance: CHOLESTYRAMINE
     Indication: PRODUCT USED FOR UNKNOWN INDICATION
     Dosage: LONG TERM, 4GM, 3/1DAY, AS NEEDED
     Route: 048
  12. EPOCH [Concomitant]
     Active Substance: ALCOHOL\SALICYLIC ACID
     Indication: CHEMOTHERAPY
     Dates: start: 20140228, end: 20140228
  13. FUZEON [Concomitant]
     Active Substance: ENFUVIRTIDE
     Indication: HIV INFECTION
     Dosage: LONG TERM
     Route: 058
  14. LIPANTHYL [Suspect]
     Active Substance: FENOFIBRATE
     Indication: PRODUCT USED FOR UNKNOWN INDICATION
     Route: 048
  15. DOXORUBICIN [Suspect]
     Active Substance: DOXORUBICIN
     Indication: LYMPHOMA AIDS RELATED
     Dosage: CYCLE = 20MG/DAY X 4 DYAS, 1ST CYCLE
     Route: 041
     Dates: start: 20140228, end: 201403
  16. INTELENCE [Concomitant]
     Active Substance: ETRAVIRINE
     Indication: HIV INFECTION
     Dosage: LONG TERM
     Route: 048
  17. 3TC [Concomitant]
     Active Substance: LAMIVUDINE
     Indication: HIV INFECTION
     Dosage: LONG TERM
     Route: 048
  18. ASPIRINE [Concomitant]
     Active Substance: ASPIRIN
     Indication: PRODUCT USED FOR UNKNOWN INDICATION
     Dosage: LONG TERM
     Route: 048
  19. CRESTOR [Concomitant]
     Active Substance: ROSUVASTATIN CALCIUM
     Indication: PRODUCT USED FOR UNKNOWN INDICATION
     Dosage: LONG TERM
     Route: 048
  20. VENLAFAXIN [Concomitant]
     Active Substance: VENLAFAXINE HYDROCHLORIDE
     Indication: DEPRESSION
     Dosage: LONG TERM
     Route: 048
  21. NOVORAPID [Concomitant]
     Active Substance: INSULIN ASPART
     Indication: INSULIN-REQUIRING TYPE 2 DIABETES MELLITUS
     Dosage: LONG TERM, ACCORDING TO BLOOD SUGAR
     Route: 058
  22. ETOPOSIDE. [Suspect]
     Active Substance: ETOPOSIDE
     Indication: LYMPHOMA AIDS RELATED
     Dosage: 4*100MG PER CYCLE, 1 CYCLE EVERY 3 WEEKS
     Route: 041
     Dates: start: 20140415, end: 20140418
  23. DOXORUBICIN [Suspect]
     Active Substance: DOXORUBICIN
     Dosage: CYCLE = 20MG/DAY X 4 DYAS, 2ND CYCLE
     Route: 041
     Dates: start: 20140324, end: 201404
  24. MABTHERA [Suspect]
     Active Substance: RITUXIMAB
     Indication: LYMPHOMA AIDS RELATED
     Dosage: 750MG PER CYCLE, 1ST CYCLE
     Route: 041
  25. MABTHERA [Suspect]
     Active Substance: RITUXIMAB
     Dosage: 750MG PER CYCLE, 2ND CYCLE
     Route: 041
  26. EPOCH [Concomitant]
     Active Substance: ALCOHOL\SALICYLIC ACID
     Dates: start: 20140324, end: 20140324
  27. CYCLOPHOSPHAMIDE. [Suspect]
     Active Substance: CYCLOPHOSPHAMIDE
     Dosage: 1 CYCLE EVERY 3 WEEKS, 1ST CYCLE
     Route: 041
     Dates: start: 20140419, end: 20140419
  28. DOXORUBICIN [Suspect]
     Active Substance: DOXORUBICIN
     Dosage: CYCLE = 20MG/DAY X 4 DYAS, THIRD CYCLE
     Route: 041
     Dates: start: 20140415, end: 20140418
  29. BACTRIM [Suspect]
     Active Substance: SULFAMETHOXAZOLE\TRIMETHOPRIM
     Indication: HIV INFECTION
     Route: 048
     Dates: end: 20140514
  30. MICARDIS [Concomitant]
     Active Substance: TELMISARTAN
     Indication: HYPERTENSION
     Route: 048
  31. EPOCH [Concomitant]
     Active Substance: ALCOHOL\SALICYLIC ACID
     Dates: start: 20140415, end: 20140415
  32. NEUPOGEN [Concomitant]
     Active Substance: FILGRASTIM
     Indication: PRODUCT USED FOR UNKNOWN INDICATION
     Route: 058
     Dates: start: 20140514, end: 20140514
  33. CYCLOPHOSPHAMIDE. [Suspect]
     Active Substance: CYCLOPHOSPHAMIDE
     Indication: LYMPHOMA AIDS RELATED
     Dosage: 1 CYCLE EVERY 3 WEEKS, 1ST CYCLE
     Route: 041
     Dates: start: 20140228, end: 201403
  34. MABTHERA [Suspect]
     Active Substance: RITUXIMAB
     Dosage: 750MG PER CYCLE, 3RD CYCLE (CYCLE EVERY 3 WEEKS)
     Route: 041
     Dates: start: 20140415, end: 20140415

REACTIONS (4)
  - Haemoglobin decreased [Unknown]
  - Agranulocytosis [Recovered/Resolved]
  - Red blood cell count decreased [Unknown]
  - Enzyme inhibition [Recovering/Resolving]

NARRATIVE: CASE EVENT DATE: 201403
